FAERS Safety Report 5825904-4 (Version None)
Quarter: 2008Q3

REPORT INFORMATION
  Report Type: 
  Country: None (occurrence: None)
  Receive Date: 20080729
  Receipt Date: 20080721
  Transmission Date: 20090109
  Serious: Yes (Hospitalization)
  Sender: FDA-Public Use
  Company Number: IT-AVENTIS-200816745GDDC

PATIENT
  Age: 32 Year
  Sex: Female

DRUGS (4)
  1. TAVANIC [Suspect]
     Route: 048
     Dates: start: 20080706, end: 20080706
  2. METRONIDAZOLE HCL [Suspect]
     Route: 042
     Dates: start: 20080706, end: 20080706
  3. URBASON [Concomitant]
     Dosage: DOSE: UNK
     Route: 048
  4. PENTACOL [Concomitant]
     Dosage: DOSE: UNK
     Route: 048

REACTIONS (1)
  - URTICARIA [None]
